FAERS Safety Report 15501305 (Version 1)
Quarter: 2018Q4

REPORT INFORMATION
  Report Type: Report from Study
  Country: ES (occurrence: ES)
  Receive Date: 20181015
  Receipt Date: 20181015
  Transmission Date: 20190205
  Serious: Yes (Other)
  Sender: FDA-Public Use
  Company Number: ES-BAUSCH-BL-2018-027870

PATIENT
  Age: 85 Year
  Sex: Female

DRUGS (7)
  1. SALBUAIR [Suspect]
     Active Substance: ALBUTEROL SULFATE
     Indication: PRODUCT USED FOR UNKNOWN INDICATION
     Dosage: IN EMERGENCIES: 25/OCT/2017 GIVEN 2 DOSES
     Route: 055
     Dates: start: 20171025, end: 20171025
  2. METILPREDNISOLONA [Concomitant]
     Active Substance: METHYLPREDNISOLONE
     Indication: PRODUCT USED FOR UNKNOWN INDICATION
     Dosage: IN EMERGENCIES: SINGLE DOSE?(888A)
     Route: 042
     Dates: start: 20171025, end: 20171025
  3. IPRATROPIO [Suspect]
     Active Substance: IPRATROPIUM BROMIDE
     Indication: RESPIRATORY FAILURE
     Dosage: IN EMERGENCIES: ON 25/OCT/2017 ADMINISTERED 2 SINGLE DOSE?(1067A)
     Route: 055
     Dates: start: 20171025, end: 20171025
  4. SALBUAIR [Suspect]
     Active Substance: ALBUTEROL SULFATE
     Dosage: 2.5 MG C/6H NEBULIZATION
     Route: 055
     Dates: start: 20171026, end: 20171026
  5. FUROSEMIDA [Concomitant]
     Active Substance: FUROSEMIDE
     Indication: PRODUCT USED FOR UNKNOWN INDICATION
     Route: 042
     Dates: start: 20171026
  6. AMOXICILINA PLUS ACIDO CLAVULANICO [Concomitant]
     Indication: PRODUCT USED FOR UNKNOWN INDICATION
     Dosage: IN EMERGENCIES
     Route: 042
     Dates: start: 20171026
  7. IPRATROPIO [Suspect]
     Active Substance: IPRATROPIUM BROMIDE
     Route: 055
     Dates: start: 20171026

REACTIONS (1)
  - Sinus tachycardia [Recovered/Resolved]

NARRATIVE: CASE EVENT DATE: 20171026
